FAERS Safety Report 5952992-7 (Version None)
Quarter: 2008Q4

REPORT INFORMATION
  Report Type: 
  Country: None (occurrence: None)
  Receive Date: 20081114
  Receipt Date: 20081103
  Transmission Date: 20090506
  Serious: Yes (Other)
  Sender: FDA-Public Use
  Company Number: US-AVENTIS-200718322US

PATIENT
  Sex: Female
  Weight: 112 kg

DRUGS (10)
  1. KETEK [Suspect]
     Route: 048
     Dates: start: 20060920
  2. ZOLOFT [Concomitant]
  3. ZOLOFT [Concomitant]
  4. LISINOPRIL [Concomitant]
     Dates: start: 20060901
  5. DETROL LA [Concomitant]
     Dates: start: 20001101
  6. ZYRTEC [Concomitant]
     Dosage: DOSE: UNK
     Dates: start: 20060501
  7. TRIAMTERENE AND HYDROCHLOROTHIAZIDE [Concomitant]
     Dosage: DOSE: 37.5/25
     Dates: start: 20020401
  8. TRIAMTERENE AND HYDROCHLOROTHIAZIDE [Concomitant]
     Dosage: DOSE: 75/50
     Dates: start: 20060101
  9. MECLIZINE [Concomitant]
     Dosage: DOSE: 25 MG EVERY 8 HRS AS NEEDED
     Dates: start: 20060920
  10. IRON SUPPLEMENT [Concomitant]
     Dosage: DOSE: UNK
     Dates: end: 20061002

REACTIONS (6)
  - FATIGUE [None]
  - HEPATIC ENZYME INCREASED [None]
  - HEPATITIS B [None]
  - HEPATITIS B CORE ANTIGEN POSITIVE [None]
  - HEPATITIS B SURFACE ANTIGEN POSITIVE [None]
  - SERUM FERRITIN INCREASED [None]
